FAERS Safety Report 7415665-X (Version None)
Quarter: 2011Q2

REPORT INFORMATION
  Report Type: 
  Country: None (occurrence: None)
  Receive Date: 20110414
  Receipt Date: 20110406
  Transmission Date: 20111010
  Serious: Yes (Other)
  Sender: FDA-Public Use
  Company Number: JP-MERCK-1103USA00920

PATIENT
  Age: 48 Year
  Sex: Male
  Weight: 69 kg

DRUGS (3)
  1. CLINORIL [Suspect]
     Indication: OSTEONECROSIS
     Route: 048
     Dates: start: 20101212, end: 20101226
  2. FOSAMAC [Concomitant]
     Route: 048
  3. MUCOSTA [Concomitant]
     Route: 048
     Dates: start: 20101212, end: 20101226

REACTIONS (3)
  - OCULAR HYPERAEMIA [None]
  - PYREXIA [None]
  - PAIN [None]
